FAERS Safety Report 5372859-5 (Version None)
Quarter: 2007Q2

REPORT INFORMATION
  Report Type: 
  Country: None (occurrence: None)
  Receive Date: 20070621
  Receipt Date: 20070418
  Transmission Date: 20071010
  Serious: No
  Sender: FDA-Public Use
  Company Number: US-CVT-070091

PATIENT
  Age: 68 Year
  Sex: Female
  Weight: 162.4 kg

DRUGS (31)
  1. RANEXA [Suspect]
     Indication: ANGINA PECTORIS
     Dosage: 500 MG, BID,ORAL; 1000 MG,BID,ORAL
     Route: 048
     Dates: start: 20070131, end: 20070227
  2. RANEXA [Suspect]
     Indication: ANGINA PECTORIS
     Dosage: 500 MG, BID,ORAL; 1000 MG,BID,ORAL
     Route: 048
     Dates: start: 20070228, end: 20070314
  3. ASPIRIN [Concomitant]
  4. IMDUR [Concomitant]
  5. NITRO (GLYCERYL TRINITRATE) [Concomitant]
  6. BETOPIC (BETAMETHASONE) [Concomitant]
  7. ADVAIR DISKUS 100/50 [Concomitant]
  8. ARTIFICIAL TEARS /00445101/ (HYPROMELLOSE) [Concomitant]
  9. FLONASE [Concomitant]
  10. CREAM FOR YEAST INFECTION [Concomitant]
  11. SYMLIN [Concomitant]
  12. AZOPT [Concomitant]
  13. AMBIEN (VOLPIDEM TARTRATE) [Concomitant]
  14. PLAVIX [Concomitant]
  15. CALCIUM /00009901/ (CALCIUM CARBONATE, CALCIUM LACTOGLUCONATE) [Concomitant]
  16. MUCINEX [Concomitant]
  17. LASIX [Concomitant]
  18. PROTONIX/ 01263201/ (PANTOPRAZOLE) [Concomitant]
  19. ZYRTEC [Concomitant]
  20. XALATAN [Concomitant]
  21. HUMULIN /00646001/ INSULIN HUMAN) [Concomitant]
  22. HUMALOG [Concomitant]
  23. COMBIVENT /01033501/ (IPRATROPIUM BROMIDE, SALBUTAMOL) [Concomitant]
  24. MICARDIS [Concomitant]
  25. VYTORIN [Concomitant]
  26. OPEON [Concomitant]
  27. DARVOCET [Concomitant]
  28. LACTULOSE [Concomitant]
  29. TRICOR [Concomitant]
  30. COREG [Concomitant]
  31. STOOL SOFTENER [Concomitant]

REACTIONS (5)
  - BLOOD GLUCOSE DECREASED [None]
  - CONSTIPATION [None]
  - DIZZINESS [None]
  - UPPER RESPIRATORY TRACT INFECTION [None]
  - VISUAL DISTURBANCE [None]
